FAERS Safety Report 5700812-8 (Version None)
Quarter: 2008Q2

REPORT INFORMATION
  Report Type: 
  Country: None (occurrence: None)
  Receive Date: 20080407
  Receipt Date: 20080221
  Transmission Date: 20081010
  Serious: Yes (Life-Threatening, Hospitalization, Other)
  Sender: FDA-Public Use
  Company Number: 2008AL001918

PATIENT
  Sex: Female

DRUGS (5)
  1. IBUPROFEN [Suspect]
     Dosage: 400 MG; Q8H; PO
     Route: 048
     Dates: start: 20080212, end: 20080212
  2. ALENDRONIC ACID [Concomitant]
  3. SYMBICORT [Concomitant]
  4. ALBUTEROL [Concomitant]
  5. CALCICHEW D3 [Concomitant]

REACTIONS (1)
  - DYSPNOEA [None]
